FAERS Safety Report 6705203-9 (Version None)
Quarter: 2010Q2

REPORT INFORMATION
  Report Type: 
  Country: None (occurrence: None)
  Receive Date: 20100430
  Receipt Date: 20100426
  Transmission Date: 20101027
  Serious: Yes (Death)
  Sender: FDA-Public Use
  Company Number: US-GILEAD-2010-0027555

PATIENT
  Sex: Female
  Weight: 82.628 kg

DRUGS (8)
  1. LETAIRIS [Suspect]
     Indication: PULMONARY ARTERIAL HYPERTENSION
     Route: 048
     Dates: start: 20090318
  2. WARFARIN SODIUM [Concomitant]
  3. BUMETANIDE [Concomitant]
  4. POTASSIUM CHLORIDE [Concomitant]
  5. DUONEB [Concomitant]
  6. OXYGEN [Concomitant]
  7. ADVAIR DISKUS 100/50 [Concomitant]
  8. SPIRIVA [Concomitant]

REACTIONS (1)
  - DEATH [None]
